FAERS Safety Report 6736175-9 (Version None)
Quarter: 2010Q2

REPORT INFORMATION
  Report Type: 
  Country: None (occurrence: None)
  Receive Date: 20100521
  Receipt Date: 20100517
  Transmission Date: 20101027
  Serious: Yes (Death, Hospitalization)
  Sender: FDA-Public Use
  Company Number: US-CELGENEUS-163-20785-10030688

PATIENT
  Sex: Male

DRUGS (3)
  1. THALOMID [Suspect]
     Indication: MULTIPLE MYELOMA
     Route: 048
     Dates: start: 20100126
  2. THALOMID [Suspect]
     Dates: start: 20100330, end: 20100405
  3. ANTIBIOTICS [Concomitant]
     Indication: DRUG USE FOR UNKNOWN INDICATION
     Route: 065
     Dates: start: 20100401, end: 20100401

REACTIONS (6)
  - CONFUSIONAL STATE [None]
  - DIARRHOEA [None]
  - DIVERTICULAR PERFORATION [None]
  - MALAISE [None]
  - MULTI-ORGAN FAILURE [None]
  - SEPTIC SHOCK [None]
